FAERS Safety Report 6576536-4 (Version None)
Quarter: 2010Q1

REPORT INFORMATION
  Report Type: 
  Country: None (occurrence: None)
  Receive Date: 20100210
  Receipt Date: 20100205
  Transmission Date: 20100710
  Serious: Yes (Other)
  Sender: FDA-Public Use
  Company Number: US-SANOFI-AVENTIS-2010SA003478

PATIENT
  Age: 69 Year
  Sex: Female

DRUGS (12)
  1. MULTAQ [Suspect]
     Indication: ATRIAL FLUTTER
     Route: 048
     Dates: start: 20100116, end: 20100120
  2. MULTAQ [Suspect]
     Dosage: HALF OF 400MG TAB AM, FULL 400MG TAB PM
     Route: 048
     Dates: start: 20100121, end: 20100126
  3. MULTAQ [Suspect]
     Route: 048
     Dates: start: 20100127
  4. TOPROL-XL [Concomitant]
     Dates: start: 20100101, end: 20100106
  5. ASPIRIN [Concomitant]
     Route: 048
  6. COENZYME Q10 [Concomitant]
  7. VITAMINS [Concomitant]
     Indication: MACULAR DEGENERATION
  8. VITAMIN B COMPLEX CAP [Concomitant]
  9. FOLIC ACID [Concomitant]
  10. SYNTHROID [Concomitant]
  11. DYAZIDE [Concomitant]
     Indication: HYPERTENSION
  12. ANTIBIOTICS [Concomitant]
     Dosage: HALF DOSE
     Dates: start: 20100121

REACTIONS (8)
  - AGITATION [None]
  - ATRIAL FLUTTER [None]
  - CONSTIPATION [None]
  - FEELING ABNORMAL [None]
  - INCORRECT DOSE ADMINISTERED [None]
  - MENTAL IMPAIRMENT [None]
  - NO THERAPEUTIC RESPONSE [None]
  - PALPITATIONS [None]
